FAERS Safety Report 7618427-3 (Version None)
Quarter: 2011Q3

REPORT INFORMATION
  Report Type: 
  Country: None (occurrence: None)
  Receive Date: 20110718
  Receipt Date: 20110712
  Transmission Date: 20111222
  Serious: Yes (Congenital Anomaly, Other)
  Sender: FDA-Public Use
  Company Number: US-PFIZER INC-2011158484

PATIENT
  Sex: Female
  Weight: 3.5 kg

DRUGS (2)
  1. EFFEXOR XR [Suspect]
     Dosage: 75 MG, UNK
     Route: 064
     Dates: start: 20060131, end: 20060101
  2. EFFEXOR XR [Suspect]
     Dosage: 37.5 MG, UNK
     Route: 064
     Dates: start: 20060314

REACTIONS (10)
  - OTITIS MEDIA [None]
  - VIRAL INFECTION [None]
  - TIBIAL TORSION [None]
  - BRONCHIOLITIS [None]
  - JAUNDICE [None]
  - HYPERVENTILATION [None]
  - MATERNAL EXPOSURE DURING PREGNANCY [None]
  - ATRIAL SEPTAL DEFECT [None]
  - CONJUNCTIVITIS INFECTIVE [None]
  - UPPER RESPIRATORY TRACT INFECTION [None]
